FAERS Safety Report 21672166 (Version 1)
Quarter: 2022Q4

REPORT INFORMATION
  Report Type: Spontaneous
  Country: AR (occurrence: AR)
  Receive Date: 20221202
  Receipt Date: 20221202
  Transmission Date: 20230113
  Serious: Yes (Other)
  Sender: FDA-Public Use
  Company Number: AR-Accord-289229

PATIENT
  Age: 13 Year
  Sex: Male

DRUGS (2)
  1. METHOTREXATE [Suspect]
     Active Substance: METHOTREXATE
     Indication: B-cell lymphoma
     Dosage: INTRAVENOUSLY AT 2 G/M2/INFUSION OVER 4 HOURS
     Route: 037
  2. LEUCOVORIN [Concomitant]
     Active Substance: LEUCOVORIN
     Indication: B-cell lymphoma
     Dosage: 3 DOSES, 15 MG/M2

REACTIONS (4)
  - Generalised tonic-clonic seizure [Recovered/Resolved]
  - Blindness [Recovered/Resolved]
  - Vasogenic cerebral oedema [Recovered/Resolved]
  - Inappropriate affect [Recovered/Resolved]
